FAERS Safety Report 19154002 (Version 5)
Quarter: 2021Q2

REPORT INFORMATION
  Report Type: Report from Study
  Country: FR (occurrence: FR)
  Receive Date: 20210419
  Receipt Date: 20210615
  Transmission Date: 20210717
  Serious: Yes (Hospitalization)
  Sender: FDA-Public Use
  Company Number: NVSC2021FR065310

PATIENT
  Age: 77 Year
  Sex: Male
  Weight: 88 kg

DRUGS (26)
  1. NAPORAFENIB. [Suspect]
     Active Substance: NAPORAFENIB
     Indication: MALIGNANT MELANOMA
     Dosage: 400 MG, BID
     Route: 048
     Dates: start: 20210302, end: 20210318
  2. SKENAN [Concomitant]
     Active Substance: MORPHINE SULFATE
     Indication: NEUROPATHY PERIPHERAL
     Dosage: UNK
     Route: 065
     Dates: start: 20210325, end: 20210327
  3. DIFFU K [Concomitant]
     Active Substance: POTASSIUM CHLORIDE
     Dosage: UNK
     Route: 065
     Dates: start: 20210320, end: 20210321
  4. BISOPROLOL [Concomitant]
     Active Substance: BISOPROLOL
     Dosage: UNK
     Route: 065
     Dates: start: 20210325, end: 20210409
  5. SMECTA [Concomitant]
     Active Substance: MONTMORILLONITE
     Indication: DIARRHOEA
     Dosage: UNK
     Route: 065
     Dates: start: 20210319, end: 20210326
  6. GAVISCON [Concomitant]
     Active Substance: ALUMINUM HYDROXIDE\MAGNESIUM CARBONATE
     Indication: PROPHYLAXIS AGAINST GASTROINTESTINAL ULCER
     Dosage: UNK
     Route: 065
     Dates: start: 20210219
  7. BETAMETHASONE. [Concomitant]
     Active Substance: BETAMETHASONE
     Indication: RASH
     Dosage: 0.1 %, UNK
     Route: 065
     Dates: start: 20210319, end: 20210408
  8. TRAMADOL. [Concomitant]
     Active Substance: TRAMADOL
     Indication: PAIN PROPHYLAXIS
     Dosage: UNK
     Route: 065
     Dates: start: 20210319, end: 20210323
  9. TIORFAN [Concomitant]
     Active Substance: RACECADOTRIL
     Indication: DIARRHOEA
     Dosage: UNK
     Route: 065
     Dates: start: 20210319, end: 20210326
  10. SKENAN [Concomitant]
     Active Substance: MORPHINE SULFATE
     Dosage: UNK
     Route: 065
     Dates: start: 20210327, end: 20210408
  11. LEE011 [Suspect]
     Active Substance: RIBOCICLIB
     Indication: MALIGNANT MELANOMA
     Dosage: 400 MG, QD
     Route: 048
     Dates: start: 20210302, end: 20210318
  12. PERMIXON [Concomitant]
     Active Substance: HERBALS\SAW PALMETTO
     Indication: BENIGN PROSTATIC HYPERPLASIA
     Dosage: UNK
     Route: 065
     Dates: start: 20180101, end: 20210409
  13. MULTIVITAMINS [Concomitant]
     Active Substance: VITAMINS
     Indication: WEIGHT DECREASED
     Dosage: UNK
     Route: 065
     Dates: start: 20210323, end: 20210326
  14. XARELTO [Concomitant]
     Active Substance: RIVAROXABAN
     Indication: PROPHYLAXIS
     Dosage: UNK
     Route: 065
     Dates: start: 20190101
  15. CORTANCYL [Concomitant]
     Active Substance: PREDNISONE
     Indication: ANKYLOSING SPONDYLITIS
     Dosage: UNK
     Route: 065
     Dates: start: 20130101, end: 20210316
  16. CORTANCYL [Concomitant]
     Active Substance: PREDNISONE
     Dosage: UNK
     Route: 065
     Dates: start: 20210317
  17. DOXYCYCLINE. [Concomitant]
     Active Substance: DOXYCYCLINE
     Indication: PROPHYLAXIS
     Dosage: UNK
     Route: 065
     Dates: start: 20210303, end: 20210325
  18. LACTATED RINGERS SOLUTION [Concomitant]
     Active Substance: CALCIUM CHLORIDE\POTASSIUM CHLORIDE\SODIUM CHLORIDE\SODIUM LACTATE
     Indication: GENERAL PHYSICAL CONDITION
     Dosage: UNK
     Route: 065
     Dates: start: 20210320, end: 20210322
  19. DIFFU K [Concomitant]
     Active Substance: POTASSIUM CHLORIDE
     Indication: GENERAL PHYSICAL CONDITION
     Dosage: UNK
     Route: 065
     Dates: start: 20210319, end: 20210319
  20. BISOPROLOL [Concomitant]
     Active Substance: BISOPROLOL
     Indication: HYPERTENSION
     Dosage: UNK
     Route: 065
     Dates: start: 20210325, end: 20210325
  21. CIMETIDINE [Concomitant]
     Active Substance: CIMETIDINE
     Indication: ABDOMINAL PAIN UPPER
     Dosage: UNK
     Route: 065
     Dates: start: 20210322, end: 20210326
  22. MULTIVITAMINS [Concomitant]
     Active Substance: VITAMINS
     Indication: DECREASED APPETITE
  23. PARACETAMOL [Concomitant]
     Active Substance: ACETAMINOPHEN
     Indication: PAIN PROPHYLAXIS
     Dosage: UNK
     Route: 065
     Dates: start: 20210319, end: 20210409
  24. NERISONE [Concomitant]
     Active Substance: DIFLUCORTOLONE VALERATE
     Indication: RASH
     Dosage: UNK
     Route: 065
     Dates: start: 20210322
  25. CANDESARTAN. [Concomitant]
     Active Substance: CANDESARTAN
     Indication: HYPERTENSION
     Dosage: UNK
     Route: 065
     Dates: start: 20150101
  26. LEVOTHYROX [Concomitant]
     Active Substance: LEVOTHYROXINE
     Indication: HYPOTHYROIDISM
     Dosage: UNK
     Route: 065
     Dates: start: 20100101

REACTIONS (4)
  - Renal failure [Recovered/Resolved]
  - Fatigue [Recovered/Resolved]
  - Oesophageal candidiasis [Recovered/Resolved]
  - Neutropenia [Recovering/Resolving]

NARRATIVE: CASE EVENT DATE: 20210316
